FAERS Safety Report 14033894 (Version 4)
Quarter: 2019Q2

REPORT INFORMATION
  Report Type: Report from Study
  Country: US (occurrence: US)
  Receive Date: 20171003
  Receipt Date: 20190523
  Transmission Date: 20190711
  Serious: No
  Sender: FDA-Public Use
  Company Number: PHEH2017US031551

PATIENT
  Sex: Male

DRUGS (1)
  1. AFINITOR [Suspect]
     Active Substance: EVEROLIMUS
     Indication: ASTROCYTOMA, LOW GRADE
     Dosage: 2.5 MG, QD
     Route: 048
     Dates: start: 20110311

REACTIONS (5)
  - Pyrexia [Recovered/Resolved]
  - Behaviour disorder [Unknown]
  - Crying [Unknown]
  - Tonsillar hypertrophy [Recovered/Resolved]
  - Oral pain [Unknown]
